FAERS Safety Report 6751615-7 (Version None)
Quarter: 2010Q2

REPORT INFORMATION
  Report Type: 
  Country: None (occurrence: None)
  Receive Date: 20100602
  Receipt Date: 20100526
  Transmission Date: 20101027
  Serious: Yes (Hospitalization)
  Sender: FDA-Public Use
  Company Number: A0784715A

PATIENT
  Age: 53 Year
  Sex: Male

DRUGS (9)
  1. AVANDIA [Suspect]
     Indication: DIABETES MELLITUS
     Dosage: 8MG TWICE PER DAY
     Route: 048
     Dates: start: 19990101, end: 20070101
  2. AVANDARYL [Suspect]
     Indication: DIABETES MELLITUS
     Route: 048
     Dates: start: 20061101
  3. OXYCONTIN [Concomitant]
  4. LISINOPRIL [Concomitant]
  5. AMBIEN [Concomitant]
  6. TEMAZEPAM [Concomitant]
  7. LOPID [Concomitant]
  8. ZESTRIL [Concomitant]
  9. INSULIN [Concomitant]

REACTIONS (5)
  - CHEST PAIN [None]
  - DYSPNOEA [None]
  - HEPATIC CIRRHOSIS [None]
  - HEPATITIS [None]
  - MYOCARDIAL INFARCTION [None]
